FAERS Safety Report 5941773-6 (Version None)
Quarter: 2008Q4

REPORT INFORMATION
  Report Type: 
  Country: None (occurrence: None)
  Receive Date: 20081105
  Receipt Date: 20081022
  Transmission Date: 20090506
  Serious: Yes (Other)
  Sender: FDA-Public Use
  Company Number: PHHY2008IE26977

PATIENT
  Sex: Female

DRUGS (1)
  1. SYNTOCINON [Suspect]
     Dosage: UNK

REACTIONS (5)
  - CAESAREAN SECTION [None]
  - DRUG DISPENSING ERROR [None]
  - DRUG EXPOSURE DURING PREGNANCY [None]
  - FOETAL DISTRESS SYNDROME [None]
  - FORCEPS DELIVERY [None]
